FAERS Safety Report 10414165 (Version 2)
Quarter: 2014Q4

REPORT INFORMATION
  Report Type: Spontaneous
  Country: DE (occurrence: None)
  Receive Date: 20140826
  Receipt Date: 20141023
  Transmission Date: 20150528
  Serious: Yes (Disabling)
  Sender: FDA-Public Use
  Company Number: 7314588

PATIENT
  Age: 69 Year
  Sex: Female

DRUGS (2)
  1. CRATAEGUTT (CRATAEGUS LAEVITGATA) (CRATAEGUS LAEVIGATA) [Concomitant]
  2. EUTHYROX (LEVOTHYROXINE SODIUM) (LEVOTHYROXINE SODIUM), 159068 [Suspect]
     Active Substance: LEVOTHYROXINE SODIUM
     Indication: PRODUCT USED FOR UNKNOWN INDICATION
     Route: 048
     Dates: start: 201311

REACTIONS (3)
  - Breast enlargement [None]
  - Weight increased [None]
  - Counterfeit drug administered [None]

NARRATIVE: CASE EVENT DATE: 201406
